FAERS Safety Report 7399289-9 (Version None)
Quarter: 2011Q1

REPORT INFORMATION
  Report Type: 
  Country: None (occurrence: None)
  Receive Date: 20110328
  Receipt Date: 20110315
  Transmission Date: 20110831
  Serious: Yes (Hospitalization)
  Sender: FDA-Public Use
  Company Number: 029290

PATIENT
  Age: 34 Year
  Sex: Male

DRUGS (4)
  1. VIMPAT [Suspect]
     Dosage: ORAL
     Route: 048
     Dates: start: 20110201, end: 20110201
  2. OXACARBAZEPINE [Concomitant]
  3. ZONEGRAN [Concomitant]
  4. URBANYL [Concomitant]

REACTIONS (1)
  - DELIRIUM [None]
